FAERS Safety Report 4701726-2 (Version None)
Quarter: 2005Q2

REPORT INFORMATION
  Report Type: 
  Country: None (occurrence: None)
  Receive Date: 20050628
  Receipt Date: 20050620
  Transmission Date: 20051028
  Serious: Yes (Hospitalization)
  Sender: FDA-Public Use
  Company Number: PHRM2005FR01911

PATIENT
  Age: 77 Year
  Sex: Female

DRUGS (3)
  1. TEGRETOL [Suspect]
     Indication: ABNORMAL BEHAVIOUR
     Dosage: 200 MG, BID
     Route: 048
     Dates: start: 20050425
  2. NOCTRAN [Suspect]
     Indication: ABNORMAL BEHAVIOUR
     Dosage: 1 DF, QD
     Route: 048
     Dates: start: 20050425
  3. TERALITHE [Concomitant]
     Dosage: 2 DF, QD
     Route: 048

REACTIONS (7)
  - ABNORMAL BEHAVIOUR [None]
  - AGITATION [None]
  - DEHYDRATION [None]
  - DEPRESSED LEVEL OF CONSCIOUSNESS [None]
  - INFLAMMATION [None]
  - NEUTROPHILIA [None]
  - URINARY TRACT INFECTION [None]
